FAERS Safety Report 15117750 (Version 1)
Quarter: 2018Q3

REPORT INFORMATION
  Report Type: Spontaneous
  Country: US (occurrence: US)
  Receive Date: 20180707
  Receipt Date: 20180707
  Transmission Date: 20181010
  Serious: No
  Sender: FDA-Public Use
  Company Number: US-JNJFOC-20180619202

PATIENT
  Age: 2 Decade
  Sex: Male
  Weight: 86.18 kg

DRUGS (2)
  1. MENS ROGAINE EXTRA STRENGTH [Suspect]
     Active Substance: MINOXIDIL
     Indication: ALOPECIA
     Dosage: UNSPECIFIED AMOUNT AT NIGHT TIME
     Route: 061
     Dates: start: 201805
  2. MENS ROGAINE EXTRA STRENGTH [Suspect]
     Active Substance: MINOXIDIL
     Route: 061

REACTIONS (5)
  - Pruritus [Unknown]
  - Product use in unapproved indication [Unknown]
  - Drug administered to patient of inappropriate age [Unknown]
  - Alopecia [Unknown]
  - Off label use [Unknown]
